FAERS Safety Report 9960667 (Version 1)
Quarter: 2014Q1

REPORT INFORMATION
  Report Type: Report from Study
  Country: JP (occurrence: JP)
  Receive Date: 20140305
  Receipt Date: 20140305
  Transmission Date: 20141002
  Serious: Yes (Hospitalization, Other)
  Sender: FDA-Public Use
  Company Number: JP-JNJFOC-20140300665

PATIENT
  Age: 76 Year
  Sex: Female
  Weight: 54 kg

DRUGS (16)
  1. SIMPONI [Suspect]
     Indication: RHEUMATOID ARTHRITIS
     Route: 058
     Dates: start: 20130507
  2. SIMPONI [Suspect]
     Indication: RHEUMATOID ARTHRITIS
     Route: 058
     Dates: start: 20130402, end: 20130402
  3. SIMPONI [Suspect]
     Indication: RHEUMATOID ARTHRITIS
     Route: 058
     Dates: start: 20130107, end: 20130107
  4. SIMPONI [Suspect]
     Indication: RHEUMATOID ARTHRITIS
     Route: 058
     Dates: start: 20121203, end: 20121203
  5. SIMPONI [Suspect]
     Indication: RHEUMATOID ARTHRITIS
     Route: 058
     Dates: start: 20121105, end: 20121105
  6. METHOTREXATE [Suspect]
     Indication: RHEUMATOID ARTHRITIS
     Route: 065
     Dates: start: 20121015, end: 20130108
  7. METHOTREXATE [Suspect]
     Indication: RHEUMATOID ARTHRITIS
     Route: 065
     Dates: start: 20120919, end: 20121014
  8. FOLIAMIN [Concomitant]
     Indication: PROPHYLAXIS
     Route: 065
  9. ISCOTIN [Concomitant]
     Indication: PROPHYLAXIS
     Route: 065
  10. PYDOXAL [Concomitant]
     Indication: PROPHYLAXIS
     Route: 065
  11. GRACEVIT [Concomitant]
     Route: 048
  12. SENNOSIDE [Concomitant]
     Indication: PROPHYLAXIS
     Route: 048
  13. DIOVAN [Concomitant]
     Indication: HYPERTENSION
     Route: 048
  14. ULCERLMIN [Concomitant]
     Indication: PROPHYLAXIS
     Route: 048
  15. RECALBON [Concomitant]
     Route: 048
  16. EDIROL [Concomitant]
     Route: 048

REACTIONS (1)
  - Pneumocystis jirovecii pneumonia [Recovered/Resolved]
